FAERS Safety Report 24431018 (Version 3)
Quarter: 2024Q4

REPORT INFORMATION
  Report Type: Spontaneous
  Country: CO (occurrence: CO)
  Receive Date: 20241014
  Receipt Date: 20241203
  Transmission Date: 20250114
  Serious: No
  Sender: AMGEN
  Company Number: CO-AMGEN-COLSP2024197180

PATIENT
  Age: 68 Year
  Sex: Male

DRUGS (2)
  1. PEGFILGRASTIM [Suspect]
     Active Substance: PEGFILGRASTIM
     Indication: Hodgkin^s disease nodular sclerosis
     Dosage: 6 MILLIGRAM, 6MG/0.6ML
     Route: 065
  2. PEGFILGRASTIM [Suspect]
     Active Substance: PEGFILGRASTIM
     Dosage: 6 MILLIGRAM, 6MG/0.6ML
     Route: 065

REACTIONS (1)
  - Device occlusion [Unknown]

NARRATIVE: CASE EVENT DATE: 20240824
